FAERS Safety Report 8997846 (Version 3)
Quarter: 2014Q3

REPORT INFORMATION
  Report Type: Report from Study
  Country: HU (occurrence: HU)
  Receive Date: 20130104
  Receipt Date: 20140925
  Transmission Date: 20150326
  Serious: Yes (Death, Hospitalization)
  Sender: FDA-Public Use
  Company Number: HU-GLAXOSMITHKLINE-B0856513A

PATIENT
  Sex: Female

DRUGS (6)
  1. QUAMATEL [Concomitant]
     Indication: PEPTIC ULCER
     Dosage: 20MG PER DAY
     Route: 065
     Dates: start: 2012
  2. ALUSULIN [Concomitant]
     Indication: PEPTIC ULCER
     Dosage: 1G UNKNOWN
     Route: 065
     Dates: start: 2012
  3. NOLPAZA [Concomitant]
     Active Substance: PANTOPRAZOLE SODIUM
     Indication: PEPTIC ULCER
     Dosage: 20MG UNKNOWN
     Route: 065
  4. TYVERB [Suspect]
     Active Substance: LAPATINIB
     Indication: HER-2 POSITIVE BREAST CANCER
     Dosage: 250MG UNKNOWN
     Route: 065
     Dates: start: 201210
  5. XELODA [Suspect]
     Active Substance: CAPECITABINE
     Indication: HER-2 POSITIVE BREAST CANCER
     Dosage: 500MG UNKNOWN
     Route: 065
     Dates: start: 201210
  6. THEOSPIREX [Concomitant]
     Active Substance: THEOPHYLLINE
     Indication: CHRONIC OBSTRUCTIVE PULMONARY DISEASE
     Dosage: 150MG PER DAY
     Route: 065
     Dates: start: 2012

REACTIONS (7)
  - Metastases to bone [Fatal]
  - Decreased appetite [Not Recovered/Not Resolved]
  - Weight decreased [Not Recovered/Not Resolved]
  - Vomiting [Not Recovered/Not Resolved]
  - Peptic ulcer [Not Recovered/Not Resolved]
  - Abdominal pain upper [Not Recovered/Not Resolved]
  - Metastases to lung [Fatal]

NARRATIVE: CASE EVENT DATE: 2012
